FAERS Safety Report 13868674 (Version 7)
Quarter: 2018Q3

REPORT INFORMATION
  Report Type: Spontaneous
  Country: US (occurrence: US)
  Receive Date: 20170815
  Receipt Date: 20180702
  Transmission Date: 20181010
  Serious: Yes (Other)
  Sender: FDA-Public Use
  Company Number: US-PFIZER INC-2017351328

PATIENT
  Age: 31 Year
  Sex: Male
  Weight: 108.8 kg

DRUGS (13)
  1. AMITRIPTYLINE [Concomitant]
     Active Substance: AMITRIPTYLINE
     Indication: SLEEP DISORDER
  2. OXYCODONE [Concomitant]
     Active Substance: OXYCODONE
     Indication: PAIN
     Dosage: 1 DF, AS NEEDED (10/325 MG 1 TAB EVERY 4 HOURS)
  3. LYRICA [Suspect]
     Active Substance: PREGABALIN
     Indication: FIBROMYALGIA
     Dosage: 100 MG, TWICE A DAY
     Route: 048
     Dates: start: 20170726, end: 201707
  4. LYRICA [Suspect]
     Active Substance: PREGABALIN
     Indication: RESTLESS LEGS SYNDROME
     Dosage: 150 MG, TWICE A DAY
     Route: 048
     Dates: start: 201707, end: 201708
  5. HYDROCODONE BITARTRATE AND ACETAMINOPHEN [Concomitant]
     Active Substance: ACETAMINOPHEN\HYDROCODONE BITARTRATE
     Indication: PAIN
  6. AMITRIPTYLINE [Concomitant]
     Active Substance: AMITRIPTYLINE
     Indication: SLEEP DISORDER
     Dosage: 200 MG, 1X/DAY AT NIGHT
     Route: 048
  7. CYCLOBENZAPRINE. [Concomitant]
     Active Substance: CYCLOBENZAPRINE
     Indication: FIBROMYALGIA
     Dosage: 10 MG, 2X/DAY
     Route: 048
  8. CYCLOBENZAPRINE. [Concomitant]
     Active Substance: CYCLOBENZAPRINE
     Indication: FACIAL PAIN
  9. HYDROCODONE BITARTRATE AND ACETAMINOPHEN [Concomitant]
     Active Substance: ACETAMINOPHEN\HYDROCODONE BITARTRATE
     Indication: FIBROMYALGIA
     Dosage: (HYDROCODONE BITARTRATE: 10, PARACETAMOL: 325)APAP 6 TIMES DAILY
     Route: 048
     Dates: start: 2018
  10. AMITRIPTYLINE [Concomitant]
     Active Substance: AMITRIPTYLINE
     Indication: MYALGIA
  11. LORATADINE. [Concomitant]
     Active Substance: LORATADINE
     Indication: SEASONAL ALLERGY
     Dosage: 10 MG, 1X/DAY (DURING SPRING AND SUMMER MONTHS)
     Route: 048
  12. LYRICA [Suspect]
     Active Substance: PREGABALIN
     Dosage: 225 MG, 2X/DAY
     Route: 048
     Dates: start: 2017
  13. TESTOSTERONE. [Concomitant]
     Active Substance: TESTOSTERONE
     Indication: TESTICULAR DISORDER
     Dosage: 1 ML, UNK TWICE A MONTH
     Route: 030

REACTIONS (18)
  - Drug dependence [Unknown]
  - Dizziness [Recovering/Resolving]
  - Therapeutic response unexpected [Not Recovered/Not Resolved]
  - Pain in extremity [Unknown]
  - Restless legs syndrome [Unknown]
  - Condition aggravated [Unknown]
  - Balance disorder [Recovering/Resolving]
  - Drug dose omission [Unknown]
  - Pre-existing condition improved [Not Recovered/Not Resolved]
  - Intentional product misuse [Unknown]
  - Anxiety [Not Recovered/Not Resolved]
  - Tachyphrenia [Not Recovered/Not Resolved]
  - Withdrawal syndrome [Unknown]
  - Energy increased [Recovering/Resolving]
  - Insomnia [Unknown]
  - Poor quality sleep [Not Recovered/Not Resolved]
  - Increased appetite [Not Recovered/Not Resolved]
  - Muscle twitching [Unknown]

NARRATIVE: CASE EVENT DATE: 2017
